FAERS Safety Report 4589172-6 (Version None)
Quarter: 2005Q1

REPORT INFORMATION
  Report Type: 
  Country: None (occurrence: None)
  Receive Date: 20050215
  Receipt Date: 20050215
  Transmission Date: 20050727
  Serious: Yes (Other)
  Sender: FDA-Public Use
  Company Number: None

PATIENT
  Sex: Female
  Weight: 50.3493 kg

DRUGS (1)
  1. EFFEXOR XR [Suspect]
     Indication: HOT FLUSH
     Dosage: 75 MG ONCE PER DAY ORAL
     Route: 048
     Dates: start: 20020501, end: 20050213

REACTIONS (6)
  - ABNORMAL BEHAVIOUR [None]
  - AFFECTIVE DISORDER [None]
  - ALCOHOL INTOLERANCE [None]
  - AMNESIA [None]
  - LOSS OF CONSCIOUSNESS [None]
  - MANIA [None]
